FAERS Safety Report 4650086-4 (Version None)
Quarter: 2005Q2

REPORT INFORMATION
  Report Type: 
  Country: None (occurrence: None)
  Receive Date: 20050428
  Receipt Date: 20050414
  Transmission Date: 20051028
  Serious: No
  Sender: FDA-Public Use
  Company Number: 10901

PATIENT
  Age: 52 Year
  Sex: Male

DRUGS (3)
  1. METHOTREXATE [Suspect]
     Indication: PSORIATIC ARTHROPATHY
     Dosage: 20 MG
     Dates: start: 20011001
  2. ETANERCEPT [Suspect]
     Indication: PSORIATIC ARTHROPATHY
     Dosage: SC
     Route: 058
     Dates: start: 20050315
  3. NSAID'S [Suspect]
     Indication: PSORIATIC ARTHROPATHY

REACTIONS (1)
  - CYTOLYTIC HEPATITIS [None]
